FAERS Safety Report 4819522-4 (Version None)
Quarter: 2005Q4

REPORT INFORMATION
  Report Type: 
  Country: None (occurrence: None)
  Receive Date: 20051031
  Receipt Date: 20050727
  Transmission Date: 20060501
  Serious: No
  Sender: FDA-Public Use
  Company Number: CLOF-10057

PATIENT
  Age: 8 Year
  Sex: Female
  Weight: 26.8 kg

DRUGS (2)
  1. CLOFARABINE [Suspect]
     Indication: ACUTE LYMPHOCYTIC LEUKAEMIA
     Dosage: 52 MG/M2 QD X 5 IV
     Route: 042
     Dates: start: 20050720, end: 20050724
  2. CLOFARABINE [Suspect]
     Indication: DISEASE RECURRENCE
     Dosage: 52 MG/M2 QD X 5 IV
     Route: 042
     Dates: start: 20050720, end: 20050724

REACTIONS (2)
  - ALANINE AMINOTRANSFERASE INCREASED [None]
  - ASPARTATE AMINOTRANSFERASE INCREASED [None]
